FAERS Safety Report 9409971 (Version 1)
Quarter: 2013Q3

REPORT INFORMATION
  Report Type: Spontaneous
  Country: US (occurrence: US)
  Receive Date: 20130719
  Receipt Date: 20130719
  Transmission Date: 20140515
  Serious: No
  Sender: FDA-Public Use
  Company Number: US-BAYER-2013-084232

PATIENT
  Sex: Female

DRUGS (1)
  1. SKYLA [Suspect]
     Indication: DYSMENORRHOEA
     Dosage: 14 MCG/24HR, CONT
     Route: 015

REACTIONS (2)
  - Depressive symptom [None]
  - Off label use [None]
